FAERS Safety Report 5067129-9 (Version None)
Quarter: 2006Q3

REPORT INFORMATION
  Report Type: 
  Country: None (occurrence: None)
  Receive Date: 20060727
  Receipt Date: 20060717
  Transmission Date: 20061208
  Serious: Yes (Other)
  Sender: FDA-Public Use
  Company Number: 14423

PATIENT
  Age: 9 Year
  Sex: Female

DRUGS (4)
  1. METHOTREXATE [Suspect]
  2. ENBREL [Suspect]
     Dosage: 10 MG 2/WK SC
     Route: 058
     Dates: start: 20041115
  3. ENBREL [Suspect]
     Dosage: 7.5 MG WEEKLY
  4. IBUPROFEN [Concomitant]

REACTIONS (2)
  - NAUSEA [None]
  - PANIC DISORDER [None]
